FAERS Safety Report 6879943-5 (Version None)
Quarter: 2010Q3

REPORT INFORMATION
  Report Type: 
  Country: None (occurrence: None)
  Receive Date: 20100728
  Receipt Date: 20100722
  Transmission Date: 20110219
  Serious: Yes (Hospitalization)
  Sender: FDA-Public Use
  Company Number: US-GILEAD-2010-0030597

PATIENT
  Age: 56 Year
  Sex: Female
  Weight: 129.84 kg

DRUGS (7)
  1. LETAIRIS [Suspect]
     Route: 048
     Dates: start: 20090123
  2. REVATIO [Concomitant]
  3. OXYGEN [Concomitant]
  4. ALDACTONE [Concomitant]
  5. LASIX [Concomitant]
  6. SYNTHROID [Concomitant]
  7. LACTULOSE [Concomitant]

REACTIONS (1)
  - POISONING [None]
